FAERS Safety Report 8400138-8 (Version None)
Quarter: 2012Q2

REPORT INFORMATION
  Report Type: 
  Country: None (occurrence: None)
  Receive Date: 20120531
  Receipt Date: 20120525
  Transmission Date: 20120825
  Serious: Yes (Other)
  Sender: FDA-Public Use
  Company Number: US-PFIZER INC-2012080963

PATIENT
  Sex: Female
  Weight: 66.213 kg

DRUGS (2)
  1. ACETYLSALICYLIC ACID [Concomitant]
     Indication: ANTIPLATELET THERAPY
     Dosage: 81 MG, DAILY
  2. NEURONTIN [Suspect]
     Indication: NEUROPATHY PERIPHERAL
     Dosage: 300 MG, 3X/DAY

REACTIONS (18)
  - MALAISE [None]
  - SPEECH DISORDER [None]
  - ORAL DISORDER [None]
  - EYELID DISORDER [None]
  - WEIGHT DECREASED [None]
  - DEHYDRATION [None]
  - DYSKINESIA [None]
  - GLOSSODYNIA [None]
  - THROAT IRRITATION [None]
  - NAUSEA [None]
  - DYSPHAGIA [None]
  - PAIN [None]
  - PHARYNGEAL OEDEMA [None]
  - TOXICITY TO VARIOUS AGENTS [None]
  - SWOLLEN TONGUE [None]
  - BLADDER DISORDER [None]
  - NEUROPATHY PERIPHERAL [None]
  - ASTHENIA [None]
